FAERS Safety Report 8434349-2 (Version None)
Quarter: 2012Q2

REPORT INFORMATION
  Report Type: 
  Country: None (occurrence: None)
  Receive Date: 20120613
  Receipt Date: 20120611
  Transmission Date: 20120825
  Serious: Yes (Disabling, Other)
  Sender: FDA-Public Use
  Company Number: US-MERCK-1206USA01506

PATIENT
  Age: 64 Year
  Sex: Female
  Weight: 80 kg

DRUGS (6)
  1. COZAAR [Suspect]
     Indication: BLOOD PRESSURE
     Route: 065
     Dates: start: 20120501
  2. COZAAR [Suspect]
     Route: 048
     Dates: end: 20120501
  3. BYSTOLIC [Concomitant]
     Indication: BLOOD PRESSURE
     Route: 065
  4. CHANTIX [Suspect]
     Indication: EX-TOBACCO USER
     Route: 048
     Dates: end: 20120501
  5. CYMBALTA [Suspect]
     Indication: DEPRESSION
     Route: 065
  6. XANAX [Suspect]
     Indication: ANXIETY
     Route: 048

REACTIONS (22)
  - ABNORMAL BEHAVIOUR [None]
  - PANIC ATTACK [None]
  - DIZZINESS [None]
  - ANGER [None]
  - DELUSION [None]
  - UNDERDOSE [None]
  - FEAR [None]
  - BLOOD PRESSURE INCREASED [None]
  - HALLUCINATION [None]
  - POOR QUALITY SLEEP [None]
  - AMNESIA [None]
  - DRUG EFFECT DECREASED [None]
  - FEELING ABNORMAL [None]
  - MENTAL DISORDER [None]
  - PSYCHOTIC DISORDER [None]
  - DRUG INEFFECTIVE [None]
  - DEPRESSION [None]
  - ADVERSE EVENT [None]
  - AGITATION [None]
  - RENAL FAILURE CHRONIC [None]
  - DYSSTASIA [None]
  - NERVOUSNESS [None]
